FAERS Safety Report 8580600 (Version 2)
Quarter: 2013Q1

REPORT INFORMATION
  Report Type: Spontaneous
  Country: FR (occurrence: None)
  Receive Date: 20120329
  Receipt Date: 20121226
  Transmission Date: 20140127
  Serious: Yes (Congenital Anomaly)
  Sender: FDA-Public Use
  Company Number: DKLU1066685

PATIENT
  Age: 1 Day
  Sex: Male
  Weight: 8.09 kg

DRUGS (5)
  1. ONFI [Suspect]
     Indication: EPILEPSY
     Dosage: 5 MG MILLIGRAM(S), 1 IN 1 D, TRANSPLACENTAL
     Route: 064
     Dates: end: 201005
  2. DEPAKENE [Suspect]
     Indication: EPILEPSY
     Dosage: 500 MG MILLIGRAM(S), 2 IN 1 D, TRANSPLACENTAL
     Route: 064
     Dates: end: 201005
  3. KEPPRA [Suspect]
     Indication: EPILEPSY
     Dosage: TRANSPLACENTAL
     Route: 064
     Dates: end: 201005
  4. DOXYLAMINE SUCCINATE [Suspect]
     Indication: TOXICITY TO VARIOUS AGENTS
     Dosage: 15 MG MILLIGRAM(S), ONCE, TRANSPLACENTAL
     Route: 064
     Dates: start: 20100522, end: 20100522
  5. CIPROFLOXACIN [Concomitant]

REACTIONS (10)
  - Toxicity to various agents [None]
  - Hearing impaired [None]
  - Ductus arteriosus premature closure [None]
  - Abscess of external auditory meatus [None]
  - Anogenital warts [None]
  - Ultrasound kidney abnormal [None]
  - Metabolic acidosis [None]
  - Ear malformation [None]
  - Renal dysplasia [None]
  - Maternal drugs affecting foetus [None]
